FAERS Safety Report 26194408 (Version 1)
Quarter: 2025Q4

REPORT INFORMATION
  Report Type: Spontaneous
  Country: JP (occurrence: JP)
  Receive Date: 20251224
  Receipt Date: 20251224
  Transmission Date: 20260118
  Serious: Yes (Death, Other)
  Sender: GILEAD
  Company Number: JP-GILEAD-2025-0714243

PATIENT
  Age: 50 Year
  Sex: Female
  Weight: 52.5 kg

DRUGS (15)
  1. TRODELVY [Suspect]
     Active Substance: SACITUZUMAB GOVITECAN-HZIY
     Indication: Triple negative breast cancer
     Dosage: 500 MG, QD
     Route: 065
     Dates: start: 20250509, end: 20250509
  2. TRODELVY [Suspect]
     Active Substance: SACITUZUMAB GOVITECAN-HZIY
     Dosage: 390 MG
     Route: 065
     Dates: start: 20250606, end: 20250620
  3. TRODELVY [Suspect]
     Active Substance: SACITUZUMAB GOVITECAN-HZIY
     Dosage: 260 MG
     Route: 065
     Dates: start: 20250704, end: 20250718
  4. CALONAL [Concomitant]
     Active Substance: ACETAMINOPHEN
     Indication: C-reactive protein increased
     Dosage: 500 MG, QD
     Route: 048
     Dates: start: 20250509, end: 20250718
  5. CALONAL [Concomitant]
     Active Substance: ACETAMINOPHEN
     Indication: White blood cell count increased
  6. FOSNETUPITANT CHLORIDE HYDROCHLORIDE [Concomitant]
     Active Substance: FOSNETUPITANT CHLORIDE HYDROCHLORIDE
     Dosage: 235 MG
     Route: 042
     Dates: start: 20250509, end: 20250718
  7. GASTER [Concomitant]
     Active Substance: FAMOTIDINE
     Dosage: 20 MG
     Route: 042
     Dates: start: 20250509, end: 20250718
  8. DEXAMETHASONE SODIUM PHOSPHATE [Concomitant]
     Active Substance: DEXAMETHASONE SODIUM PHOSPHATE
     Dosage: 3.3 MG
     Route: 042
     Dates: start: 20250509, end: 20250718
  9. DEXAMETHASONE SODIUM PHOSPHATE [Concomitant]
     Active Substance: DEXAMETHASONE SODIUM PHOSPHATE
     Dosage: 6.6 MG
     Route: 042
     Dates: start: 20250509, end: 20250718
  10. POLARAMINE [Concomitant]
     Active Substance: DEXCHLORPHENIRAMINE MALEATE
     Dosage: 5 MG
     Route: 042
     Dates: start: 20250509, end: 20250718
  11. PALONOSETRON HYDROCHLORIDE [Concomitant]
     Active Substance: PALONOSETRON HYDROCHLORIDE
     Dosage: 0.75 MG
     Route: 042
     Dates: start: 20250509, end: 20250718
  12. HEPARIN SODIUM [Concomitant]
     Active Substance: HEPARIN SODIUM
     Dosage: 10 UNITS
     Route: 042
     Dates: start: 20250509, end: 20250718
  13. IRINOTECAN HYDROCHLORIDE [Concomitant]
     Active Substance: IRINOTECAN HYDROCHLORIDE
     Indication: Triple negative breast cancer
     Dosage: UNK
     Dates: end: 20250425
  14. PEGFILGRASTIM [Concomitant]
     Active Substance: PEGFILGRASTIM
     Indication: Prophylaxis
     Dosage: 3.6 MG
     Route: 058
     Dates: start: 20250608, end: 20250608
  15. PEGFILGRASTIM [Concomitant]
     Active Substance: PEGFILGRASTIM
     Dosage: 3.6 MG
     Route: 058
     Dates: start: 20250706, end: 20250706

REACTIONS (10)
  - Triple negative breast cancer [Unknown]
  - Neutrophil count decreased [Recovered/Resolved]
  - Neutrophil count decreased [Recovering/Resolving]
  - Malignant pleural effusion [Fatal]
  - Urinary occult blood positive [Recovered/Resolved]
  - C-reactive protein increased [Not Recovered/Not Resolved]
  - White blood cell count increased [Not Recovered/Not Resolved]
  - Tumour associated fever [Unknown]
  - Neutrophil count decreased [Unknown]
  - Constipation [Unknown]

NARRATIVE: CASE EVENT DATE: 20250101
